FAERS Safety Report 14257795 (Version 1)
Quarter: 2017Q4

REPORT INFORMATION
  Report Type: Spontaneous
  Country: TW (occurrence: TW)
  Receive Date: 20171207
  Receipt Date: 20171207
  Transmission Date: 20180321
  Serious: Yes (Other)
  Sender: FDA-Public Use
  Company Number: TW-CIPLA LTD.-2017TW21499

PATIENT

DRUGS (1)
  1. TOPIRAMATE. [Suspect]
     Active Substance: TOPIRAMATE
     Dosage: UNK
     Route: 065

REACTIONS (3)
  - Choroidal effusion [Recovered/Resolved]
  - Myopia [Recovered/Resolved]
  - Angle closure glaucoma [Recovered/Resolved]
